FAERS Safety Report 4598828-0 (Version None)
Quarter: 2005Q1

REPORT INFORMATION
  Report Type: 
  Country: None (occurrence: None)
  Receive Date: 20050302
  Receipt Date: 20050216
  Transmission Date: 20050727
  Serious: Yes (Hospitalization)
  Sender: FDA-Public Use
  Company Number: 230610K05USA

PATIENT
  Age: 32 Year
  Sex: Female

DRUGS (2)
  1. REBIF [Suspect]
     Indication: MULTIPLE SCLEROSIS
     Dosage: 44 MCG, 3 IN 1 WEEKS
     Dates: start: 20040621
  2. LIORESAL [Suspect]
     Dates: start: 20041001

REACTIONS (5)
  - CONVULSION [None]
  - MENINGITIS CHEMICAL [None]
  - MUSCLE SPASMS [None]
  - THROMBOSIS [None]
  - URINARY TRACT INFECTION [None]
